FAERS Safety Report 8187770-4 (Version None)
Quarter: 2012Q1

REPORT INFORMATION
  Report Type: 
  Country: None (occurrence: None)
  Receive Date: 20120306
  Receipt Date: 20111221
  Transmission Date: 20120608
  Serious: Yes (Life-Threatening, Hospitalization, Other)
  Sender: FDA-Public Use
  Company Number: FR-MERCK-1201FRA00015

PATIENT
  Age: 53 Year
  Sex: Male

DRUGS (7)
  1. TRAMADOL HCL [Suspect]
     Route: 048
     Dates: start: 20061230, end: 20061230
  2. ACETAMINOPHEN [Suspect]
     Route: 048
     Dates: start: 20061230, end: 20061230
  3. CITALOPRAM HYDROBROMIDE [Suspect]
     Route: 048
     Dates: start: 20061230, end: 20061230
  4. AMITRIPTYLINE HCL [Suspect]
     Route: 048
     Dates: start: 20061230, end: 20061230
  5. ASPIRIN AND CAFFEINE AND PROPOXYPHENE HYDROCHLORIDE [Suspect]
     Route: 065
  6. TRIMEPRAZINE TARTRATE [Suspect]
     Route: 048
     Dates: start: 20061230, end: 20061230
  7. ZOCOR [Suspect]
     Route: 048
     Dates: start: 20061230, end: 20061230

REACTIONS (3)
  - HEPATITIS FULMINANT [None]
  - COMA [None]
  - MULTIPLE DRUG OVERDOSE INTENTIONAL [None]
